FAERS Safety Report 10168639 (Version 2)
Quarter: 2016Q3

REPORT INFORMATION
  Report Type: Spontaneous
  Country: FR (occurrence: FR)
  Receive Date: 20140513
  Receipt Date: 20160719
  Transmission Date: 20161108
  Serious: Yes (Other)
  Sender: FDA-Public Use
  Company Number: FR-BRISTOL-MYERS SQUIBB COMPANY-20704490

PATIENT

DRUGS (1)
  1. EFAVIRENZ [Suspect]
     Active Substance: EFAVIRENZ
     Indication: PRODUCT USED FOR UNKNOWN INDICATION
     Route: 065

REACTIONS (3)
  - Cerebral ventricle dilatation [Unknown]
  - Foetal exposure during pregnancy [Recovered/Resolved]
  - White matter lesion [Unknown]
